FAERS Safety Report 5483853-8 (Version None)
Quarter: 2007Q4

REPORT INFORMATION
  Report Type: 
  Country: None (occurrence: None)
  Receive Date: 20071012
  Receipt Date: 20071005
  Transmission Date: 20080405
  Serious: Yes (Hospitalization)
  Sender: FDA-Public Use
  Company Number: FR-ASTRAZENECA-2007CG01416

PATIENT
  Sex: Male

DRUGS (10)
  1. ATACAND [Suspect]
     Route: 048
     Dates: end: 20071003
  2. INIPOMP [Suspect]
     Dates: end: 20071003
  3. LASIX [Concomitant]
  4. AMLOR [Concomitant]
  5. DIGOXIN [Concomitant]
  6. STABLON [Concomitant]
  7. SPECIAFOLDINE [Concomitant]
  8. VITAMINE B1 [Concomitant]
  9. KARDEGIC [Concomitant]
  10. LOVENOX [Concomitant]

REACTIONS (1)
  - WHITE BLOOD CELL COUNT DECREASED [None]
